FAERS Safety Report 8093406-3 (Version None)
Quarter: 2012Q1

REPORT INFORMATION
  Report Type: 
  Country: None (occurrence: None)
  Receive Date: 20120131
  Receipt Date: 20120120
  Transmission Date: 20120608
  Serious: Yes (Hospitalization)
  Sender: FDA-Public Use
  Company Number: CH-TEVA-2011005470

PATIENT
  Age: 78 Year
  Sex: Female

DRUGS (8)
  1. METOPROLOL TARTRATE AND HYDROCHLOROTHIAZIDE [Concomitant]
     Dates: start: 20110901
  2. ENALAPRIL MALEATE [Concomitant]
     Dates: start: 20110901
  3. RITUXIMAB [Suspect]
     Indication: LYMPHOMA
     Route: 042
     Dates: start: 20110816
  4. MARCUMAR [Concomitant]
     Dates: start: 20110901
  5. TORSEMIDE [Concomitant]
  6. LENALIDOMIDE [Suspect]
     Indication: LYMPHOMA
     Route: 048
     Dates: start: 20110816
  7. BENDAMUSTINE [Suspect]
     Indication: LYMPHOMA
     Route: 042
     Dates: start: 20110816
  8. ATORVASTATIN CALCIUM [Concomitant]

REACTIONS (1)
  - SICK SINUS SYNDROME [None]
